FAERS Safety Report 4716789-8 (Version None)
Quarter: 2005Q3

REPORT INFORMATION
  Report Type: 
  Country: None (occurrence: None)
  Receive Date: 20050714
  Receipt Date: 20050705
  Transmission Date: 20060218
  Serious: Yes (Life-Threatening, Hospitalization, Other)
  Sender: FDA-Public Use
  Company Number: 2005089166

PATIENT
  Sex: Male

DRUGS (3)
  1. VIAGRA [Suspect]
     Indication: ILL-DEFINED DISORDER
     Dosage: ORAL
     Route: 048
  2. NITROGLYCERIN [Suspect]
     Indication: CARDIAC FAILURE
  3. TOLEDOMIN (MILNACIPRAN HYDROCHLORIDE) [Concomitant]

REACTIONS (2)
  - CARDIAC FAILURE [None]
  - CARDIOGENIC SHOCK [None]
